FAERS Safety Report 9165136 (Version 1)
Quarter: 2013Q1

REPORT INFORMATION
  Report Type: Spontaneous
  Country: GB (occurrence: None)
  Receive Date: 20130227
  Receipt Date: 20130227
  Transmission Date: 20140127
  Serious: Yes (Hospitalization)
  Sender: FDA-Public Use
  Company Number: KAD201302-000242

PATIENT
  Age: 62 Year
  Sex: Male

DRUGS (5)
  1. RIBAVIRIN (RIBAVIRIN) [Suspect]
     Indication: HEPATITIS C
     Route: 048
     Dates: start: 20121001
  2. RIBAVIRIN (RIBAVIRIN) [Suspect]
     Route: 048
     Dates: start: 20121001
  3. RIBAVIRIN (RIBAVIRIN) [Suspect]
     Route: 048
     Dates: start: 20121001
  4. PEGINTERFERON ALFA-2B (PEGINTERFERON ALFA-2B) [Suspect]
     Indication: HEPATITIS C
     Route: 058
     Dates: start: 20121001
  5. INCIVO [Suspect]
     Indication: HEPATITIS C
     Route: 048
     Dates: start: 20121001

REACTIONS (2)
  - Blood test abnormal [None]
  - Haemoglobin decreased [None]
